FAERS Safety Report 7963085 (Version 3)
Quarter: 2012Q4

REPORT INFORMATION
  Report Type: 
  Country: US (occurrence: US)
  Receive Date: 20110526
  Receipt Date: 20120918
  Transmission Date: 20130627
  Serious: Yes (Hospitalization)
  Sender: FDA-Public Use
  Company Number: US-MPIJNJ-2011-02074

PATIENT
  Age: 79 Year
  Sex: Female
  Weight: 66.21 kg

DRUGS (4)
  1. VELCADE [Suspect]
     Indication: MULTIPLE MYELOMA
     Dosage: 1.3 mg/m2, Cyclic
     Route: 042
     Dates: start: 20100415, end: 20110119
  2. DECADRON [Suspect]
     Indication: MULTIPLE MYELOMA
     Dosage: 20 mg, Cyclic
     Route: 042
     Dates: start: 20100415, end: 20110119
  3. DECADRON                            /00016001/ [Suspect]
     Dosage: 20 UNK, UNK
     Route: 048
     Dates: start: 20100415, end: 20110119
  4. AMICAR [Concomitant]
     Indication: EPISTAXIS
     Dosage: UNK
     Dates: start: 201006

REACTIONS (5)
  - Haematoma [Recovered/Resolved]
  - Epistaxis [Recovered/Resolved]
  - Pyrexia [Recovered/Resolved]
  - Headache [Recovered/Resolved]
  - Catheter site haematoma [None]
